FAERS Safety Report 5206346-1 (Version None)
Quarter: 2006Q4

REPORT INFORMATION
  Report Type: 
  Country: None (occurrence: None)
  Receive Date: 20061026
  Receipt Date: 20060909
  Transmission Date: 20070319
  Serious: Yes (Hospitalization)
  Sender: FDA-Public Use
  Company Number: 2006096571

PATIENT
  Age: 26 Year
  Sex: 0

DRUGS (6)
  1. LYRICA [Suspect]
     Indication: NEUROPATHY
     Dosage: 450 MG (150 MG, 3 IN 1 D) UNKNOWN
     Dates: start: 20060701, end: 20060801
  2. OXYCONTIN [Concomitant]
  3. CYMBALTA [Concomitant]
  4. ZYPREXA [Concomitant]
  5. DAPSONE [Concomitant]
  6. THALIDOMIDE [Concomitant]

REACTIONS (2)
  - PITTING OEDEMA [None]
  - WEIGHT INCREASED [None]
